FAERS Safety Report 8423656-5 (Version None)
Quarter: 2012Q2

REPORT INFORMATION
  Report Type: 
  Country: None (occurrence: None)
  Receive Date: 20120608
  Receipt Date: 20120607
  Transmission Date: 20120825
  Serious: Yes (Death)
  Sender: FDA-Public Use
  Company Number: PHHY2012AU048801

PATIENT
  Age: 24 Year
  Sex: Male

DRUGS (4)
  1. TEMAZEPAM [Suspect]
  2. STREET HEROIN [Suspect]
  3. DIAZEPAM [Suspect]
  4. OXAZEPAM [Suspect]

REACTIONS (1)
  - TOXICITY TO VARIOUS AGENTS [None]
